FAERS Safety Report 25235910 (Version 2)
Quarter: 2025Q3

REPORT INFORMATION
  Report Type: Report from Study
  Country: CN (occurrence: CN)
  Receive Date: 20250424
  Receipt Date: 20250803
  Transmission Date: 20251021
  Serious: Yes (Other)
  Sender: ALEXION PHARMACEUTICALS
  Company Number: CN-ASTRAZENECA-202504GLO016593CN

PATIENT
  Age: 3 Year
  Sex: Female

DRUGS (8)
  1. SELUMETINIB [Suspect]
     Active Substance: SELUMETINIB
     Route: 065
     Dates: start: 20240705, end: 20240707
  2. SELUMETINIB [Suspect]
     Active Substance: SELUMETINIB
     Route: 065
  3. OSELTAMIVIR [Concomitant]
     Active Substance: OSELTAMIVIR
     Route: 065
  4. AZITHROMYCIN [Concomitant]
     Active Substance: AZITHROMYCIN
     Route: 065
  5. AZITHROMYCIN [Concomitant]
     Active Substance: AZITHROMYCIN
     Route: 065
     Dates: start: 20250315, end: 20250320
  6. AMINOPHENAZONE [Concomitant]
     Active Substance: AMINOPHENAZONE
     Route: 065
     Dates: start: 20250315, end: 20250320
  7. BUDESONIDE [Concomitant]
     Active Substance: BUDESONIDE
     Route: 065
  8. BUDESONIDE [Concomitant]
     Active Substance: BUDESONIDE
     Route: 065
     Dates: start: 20250331, end: 20250405

REACTIONS (1)
  - Haematochezia [Recovered/Resolved]

NARRATIVE: CASE EVENT DATE: 20250126
